FAERS Safety Report 11151414 (Version 1)
Quarter: 2015Q2

REPORT INFORMATION
  Report Type: Spontaneous
  Country: AU (occurrence: None)
  Receive Date: 20150528
  Receipt Date: 20150528
  Transmission Date: 20150821
  Serious: Yes (Hospitalization, Other)
  Sender: FDA-Public Use
  Company Number: 2015-11400

PATIENT
  Age: 85 Year
  Sex: Female

DRUGS (1)
  1. EYLEA [Suspect]
     Active Substance: AFLIBERCEPT
     Indication: NEOVASCULAR AGE-RELATED MACULAR DEGENERATION
     Route: 031

REACTIONS (4)
  - Cardiac pacemaker replacement [None]
  - Eye infection [None]
  - Blindness unilateral [None]
  - Abnormal sensation in eye [None]

NARRATIVE: CASE EVENT DATE: 201312
